FAERS Safety Report 17884124 (Version 1)
Quarter: 2020Q2

REPORT INFORMATION
  Report Type: Spontaneous
  Country: IR (occurrence: IR)
  Receive Date: 20200611
  Receipt Date: 20200611
  Transmission Date: 20200714
  Serious: Yes (Other)
  Sender: FDA-Public Use
  Company Number: NVSC2020IR157558

PATIENT
  Age: 30 Year
  Sex: Female

DRUGS (1)
  1. DESFERAL [Suspect]
     Active Substance: DEFEROXAMINE MESYLATE
     Indication: THALASSAEMIA BETA
     Dosage: 35 MG/KG, 8 HOUR PUMP
     Route: 058
     Dates: start: 1992, end: 20200530

REACTIONS (6)
  - Myringitis [Unknown]
  - Bone pain [Unknown]
  - Tonsillitis [Unknown]
  - Lethargy [Unknown]
  - Contusion [Unknown]
  - Pruritus [Unknown]

NARRATIVE: CASE EVENT DATE: 20200529
